FAERS Safety Report 8147596-4 (Version None)
Quarter: 2012Q1

REPORT INFORMATION
  Report Type: 
  Country: None (occurrence: None)
  Receive Date: 20120218
  Receipt Date: 20120208
  Transmission Date: 20120608
  Serious: Yes (Other)
  Sender: FDA-Public Use
  Company Number: US-ASTRAZENECA-2011SE77796

PATIENT
  Age: 21 Year
  Sex: Male
  Weight: 63.5 kg

DRUGS (46)
  1. SEROQUEL [Interacting]
     Indication: ATTENTION DEFICIT/HYPERACTIVITY DISORDER
     Route: 048
     Dates: start: 20070101, end: 20080101
  2. SEROQUEL [Interacting]
     Route: 048
     Dates: start: 20080101, end: 20110301
  3. SEROQUEL [Interacting]
     Route: 048
     Dates: start: 20080101, end: 20110301
  4. SEROQUEL [Interacting]
     Route: 048
  5. XANAX [Concomitant]
  6. SEROQUEL [Interacting]
     Indication: OBSESSIVE-COMPULSIVE DISORDER
     Route: 048
     Dates: start: 20070101, end: 20080101
  7. STAVZOR [Interacting]
     Route: 048
  8. STRATTERA [Concomitant]
  9. REMERON [Concomitant]
  10. DEPLIN [Concomitant]
  11. CYMBALTA [Concomitant]
  12. SEROQUEL [Interacting]
     Route: 048
     Dates: start: 20100101
  13. STAVZOR [Interacting]
     Route: 048
     Dates: start: 20100501
  14. ZOLOFT [Concomitant]
  15. SEROQUEL [Interacting]
     Route: 048
     Dates: start: 20110301, end: 20111101
  16. SEROQUEL [Interacting]
     Route: 048
     Dates: start: 20100101
  17. SEROQUEL [Interacting]
     Route: 048
     Dates: start: 20110501
  18. SEROQUEL [Interacting]
     Route: 048
     Dates: start: 20110501
  19. SEROQUEL [Interacting]
     Route: 048
     Dates: start: 20110501
  20. SEROQUEL [Interacting]
     Route: 048
  21. SEROQUEL [Interacting]
     Route: 048
  22. ABILIFY [Concomitant]
  23. DEPAKOTE ER [Concomitant]
  24. RISPERDAL [Concomitant]
  25. RITALIN [Concomitant]
  26. SEROQUEL [Suspect]
     Indication: BIPOLAR I DISORDER
     Route: 048
     Dates: start: 20070101, end: 20080101
  27. SEROQUEL [Interacting]
     Route: 048
     Dates: start: 20080101, end: 20110301
  28. SEROQUEL [Interacting]
     Route: 048
     Dates: start: 20110301, end: 20111101
  29. SEROQUEL [Interacting]
     Route: 048
     Dates: start: 20100101
  30. SEROQUEL [Interacting]
     Route: 048
     Dates: start: 20110501
  31. SEROQUEL [Interacting]
     Route: 048
  32. GEODON [Concomitant]
  33. INVEGA [Concomitant]
  34. SEROQUEL [Interacting]
     Indication: BIPOLAR DISORDER
     Route: 048
     Dates: start: 20070101, end: 20080101
  35. SEROQUEL [Interacting]
     Route: 048
     Dates: start: 20080101, end: 20110301
  36. SYNTHROID [Concomitant]
     Indication: THYROID DISORDER
     Route: 048
     Dates: start: 20110901
  37. LAMICTAL [Concomitant]
  38. SEROQUEL [Interacting]
     Route: 048
     Dates: start: 20110301, end: 20111101
  39. CONCERTA [Concomitant]
     Indication: DEPRESSION
     Route: 048
  40. PROZAC [Concomitant]
  41. CLONIDINE [Concomitant]
  42. WELLBUTRIN [Concomitant]
  43. PROVIGIL [Concomitant]
  44. SEROQUEL [Interacting]
     Route: 048
     Dates: start: 20110301, end: 20111101
  45. SEROQUEL [Interacting]
     Route: 048
     Dates: start: 20100101
  46. ADDERALL 5 [Concomitant]

REACTIONS (11)
  - DRUG INTOLERANCE [None]
  - ABNORMAL BEHAVIOUR [None]
  - THYROID DISORDER [None]
  - AGGRESSION [None]
  - IMPATIENCE [None]
  - TARDIVE DYSKINESIA [None]
  - MOOD SWINGS [None]
  - DRUG DOSE OMISSION [None]
  - POTENTIATING DRUG INTERACTION [None]
  - WEIGHT INCREASED [None]
  - OFF LABEL USE [None]
